FAERS Safety Report 19370329 (Version 1)
Quarter: 2021Q2

REPORT INFORMATION
  Report Type: Other
  Country: CA (occurrence: CA)
  Receive Date: 20210604
  Receipt Date: 20210604
  Transmission Date: 20210717
  Serious: Yes (Other)
  Sender: FDA-Public Use
  Company Number: CA-CELLTRION INC.-2021CA007254

PATIENT

DRUGS (12)
  1. MYCOPHENOLATE MOFETIL. [Suspect]
     Active Substance: MYCOPHENOLATE MOFETIL
     Indication: CONGENITAL SYPHILITIC OSTEOCHONDRITIS
  2. MYCOPHENOLATE MOFETIL. [Suspect]
     Active Substance: MYCOPHENOLATE MOFETIL
     Indication: VASCULITIS
     Route: 065
  3. RITUXIMAB (UNKNOWN) [Suspect]
     Active Substance: RITUXIMAB
     Indication: CONGENITAL SYPHILITIC OSTEOCHONDRITIS
     Dosage: 1000 MILLIGRAM, 1 EVERY 15 DAYS
     Route: 042
  4. CALCIUM [Concomitant]
     Active Substance: CALCIUM
  5. PERINDOPRIL [Concomitant]
     Active Substance: PERINDOPRIL
  6. DOXYCYCLINE. [Concomitant]
     Active Substance: DOXYCYCLINE
  7. PREDNISONE. [Concomitant]
     Active Substance: PREDNISONE
  8. SEPTRA [Concomitant]
     Active Substance: SULFAMETHOXAZOLE\TRIMETHOPRIM
     Dosage: UNK
  9. RITUXIMAB (UNKNOWN) [Suspect]
     Active Substance: RITUXIMAB
     Indication: VASCULITIS
     Dosage: 500 MILLIGRAM
     Route: 042
  10. RITUXIMAB (UNKNOWN) [Suspect]
     Active Substance: RITUXIMAB
     Dosage: 1000 MILLIGRAM
     Route: 042
  11. LANTUS [Concomitant]
     Active Substance: INSULIN GLARGINE
  12. POTASSIUM [Concomitant]
     Active Substance: POTASSIUM

REACTIONS (2)
  - Off label use [Unknown]
  - Blindness [Not Recovered/Not Resolved]
